FAERS Safety Report 23399645 (Version 1)
Quarter: 2024Q1

REPORT INFORMATION
  Report Type: Spontaneous
  Country: AU (occurrence: AU)
  Receive Date: 20240113
  Receipt Date: 20240113
  Transmission Date: 20240410
  Serious: Yes (Other)
  Sender: FDA-Public Use
  Company Number: AU-AMGEN-AUSSP2024007084

PATIENT
  Sex: Female

DRUGS (6)
  1. BEVACIZUMAB [Suspect]
     Active Substance: BEVACIZUMAB
     Indication: Ovarian cancer
     Dosage: 4 CYCLES FROM 22/APR/2022 TO 11/JUL/2022
     Route: 065
  2. CARBOPLATIN [Suspect]
     Active Substance: CARBOPLATIN
     Indication: Ovarian cancer
     Dosage: 3 CYCLES FROM 11/FEB/2022 TO 08APR/2022
     Route: 065
  3. CARBOPLATIN [Suspect]
     Active Substance: CARBOPLATIN
     Dosage: 4 CYCLES 22/APR/2022 TO 11/JUL/2022
     Route: 065
  4. PACLITAXEL [Suspect]
     Active Substance: PACLITAXEL
     Indication: Ovarian cancer
     Dosage: 3 CYCLES FROM 11/FEB/2022 TO 08APR/2022
     Route: 065
  5. DOXORUBICIN HYDROCHLORIDE [Suspect]
     Active Substance: DOXORUBICIN HYDROCHLORIDE
     Indication: Ovarian cancer
     Dosage: 4 CYCLES FROM 22/APR/2022 TO 11/JUL/2022
     Route: 065
  6. LETROZOLE [Suspect]
     Active Substance: LETROZOLE
     Indication: Product used for unknown indication
     Route: 065

REACTIONS (4)
  - Ovarian cancer [Unknown]
  - Disseminated tuberculosis [Unknown]
  - Malignant neoplasm progression [Unknown]
  - Mesenteric neoplasm [Unknown]
